FAERS Safety Report 25118650 (Version 1)
Quarter: 2025Q1

REPORT INFORMATION
  Report Type: Spontaneous
  Country: CN (occurrence: CN)
  Receive Date: 20250325
  Receipt Date: 20250325
  Transmission Date: 20250409
  Serious: Yes (Life-Threatening)
  Sender: BAYER HEALTHCARE PHARMACEUTICALS INC.
  Company Number: CN-BAYER-2025A040224

PATIENT
  Age: 69 Year
  Sex: Male
  Weight: 60 kg

DRUGS (2)
  1. ULTRAVIST [Suspect]
     Active Substance: IOPROMIDE
     Indication: Computerised tomogram abdomen
     Route: 042
     Dates: start: 20250212, end: 20250212
  2. ULTRAVIST [Suspect]
     Active Substance: IOPROMIDE
     Indication: Testicular mass

REACTIONS (6)
  - Hypotension [Recovered/Resolved]
  - Flushing [Recovered/Resolved]
  - Conjunctival hyperaemia [None]
  - Nausea [Recovering/Resolving]
  - Chest discomfort [None]
  - Heart rate decreased [None]

NARRATIVE: CASE EVENT DATE: 20250212
